FAERS Safety Report 5212493-0 (Version None)
Quarter: 2007Q1

REPORT INFORMATION
  Report Type: 
  Country: None (occurrence: None)
  Receive Date: 20070118
  Receipt Date: 20070115
  Transmission Date: 20070707
  Serious: Yes (Hospitalization, Other)
  Sender: FDA-Public Use
  Company Number: BR-SHR-BR-2006-037606

PATIENT
  Age: 33 Year
  Sex: Female
  Weight: 62 kg

DRUGS (1)
  1. YASMIN [Suspect]
     Indication: ORAL CONTRACEPTION
     Dosage: 1 TAB(S), UNK
     Route: 048
     Dates: start: 20030101

REACTIONS (3)
  - HEADACHE [None]
  - SURGERY [None]
  - WEIGHT DECREASED [None]
